FAERS Safety Report 4404606-5 (Version None)
Quarter: 2004Q3

REPORT INFORMATION
  Report Type: 
  Country: None (occurrence: None)
  Receive Date: 20040720
  Receipt Date: 20040707
  Transmission Date: 20050211
  Serious: Yes (Hospitalization)
  Sender: FDA-Public Use
  Company Number: 236489

PATIENT
  Age: 68 Year
  Sex: Female
  Weight: 104 kg

DRUGS (6)
  1. ACTRAPID (INSULIN HUMAN) SOLUTION FOR INFUSION [Suspect]
     Indication: INSULIN-REQUIRING TYPE II DIABETES MELLITUS
     Dosage: 16 IU,  SUBCUTANEOUS
     Route: 058
     Dates: start: 20040326
  2. ATORVASTATIN CALCIUM [Concomitant]
  3. DIAMICRON [Concomitant]
  4. PREVISCAN (FLUINDIONE) [Concomitant]
  5. LASIX [Concomitant]
  6. AMLODIPINE BESYLATE [Concomitant]

REACTIONS (1)
  - THROMBOCYTOPENIA [None]
